FAERS Safety Report 13036205 (Version 2)
Quarter: 2017Q1

REPORT INFORMATION
  Report Type: Spontaneous
  Country: US (occurrence: US)
  Receive Date: 20161216
  Receipt Date: 20170130
  Transmission Date: 20170428
  Serious: Yes (Other)
  Sender: FDA-Public Use
  Company Number: US-009507513-1612USA004060

PATIENT
  Age: 42 Year
  Sex: Female
  Weight: 90.7 kg

DRUGS (1)
  1. NEXPLANON [Suspect]
     Active Substance: ETONOGESTREL
     Indication: CONTRACEPTION
     Dosage: SINGLE DOSE 68 MG
     Route: 059
     Dates: start: 20161011, end: 20161207

REACTIONS (2)
  - Device expulsion [Recovered/Resolved]
  - Depression suicidal [Unknown]

NARRATIVE: CASE EVENT DATE: 2016
